FAERS Safety Report 5231140-5 (Version None)
Quarter: 2007Q1

REPORT INFORMATION
  Report Type: 
  Country: None (occurrence: None)
  Receive Date: 20070206
  Receipt Date: 20070202
  Transmission Date: 20070707
  Serious: Yes (Other)
  Sender: FDA-Public Use
  Company Number: US-MERCK-00010551

PATIENT
  Age: 72 Year
  Sex: Female
  Weight: 57 kg

DRUGS (11)
  1. FOSAMAX [Suspect]
     Indication: OSTEOPOROSIS
     Route: 048
     Dates: start: 19970501, end: 19990101
  2. FOSAMAX [Suspect]
     Route: 048
     Dates: start: 19990101
  3. FOSAMAX [Suspect]
     Route: 048
     Dates: start: 19970501
  4. FOSAMAX [Suspect]
     Indication: COMPRESSION FRACTURE
     Route: 048
     Dates: start: 19970501, end: 19990101
  5. FOSAMAX [Suspect]
     Route: 048
     Dates: start: 19990101
  6. FOSAMAX [Suspect]
     Route: 048
     Dates: start: 19970501
  7. SYNTHROID [Concomitant]
     Route: 065
  8. FORTEO [Concomitant]
     Route: 065
  9. HYDROCHLOROTHIAZIDE [Concomitant]
     Route: 065
  10. K-DUR 10 [Concomitant]
     Route: 065
  11. ASPIRIN [Concomitant]
     Route: 065

REACTIONS (2)
  - DIARRHOEA [None]
  - SPINAL FRACTURE [None]
